FAERS Safety Report 16961714 (Version 1)
Quarter: 2019Q4

REPORT INFORMATION
  Report Type: Spontaneous
  Country: US (occurrence: US)
  Receive Date: 20191024
  Receipt Date: 20191024
  Transmission Date: 20200122
  Serious: No
  Sender: FDA-Public Use
  Company Number: None

PATIENT
  Age: 35 Year
  Sex: Male
  Weight: 99 kg

DRUGS (6)
  1. LEVOFLOXACIN. [Concomitant]
     Active Substance: LEVOFLOXACIN
  2. VITAMIN D 4000 IU [Concomitant]
  3. LEVOFLOXACIN 750MG TABLET [Suspect]
     Active Substance: LEVOFLOXACIN
     Indication: PNEUMONIA
     Dosage: ?          QUANTITY:7 TABLET(S);?
     Route: 048
     Dates: start: 20190924, end: 20190926
  4. OSELTAMIVIR 6MG/ML SUS ALV [Concomitant]
     Active Substance: OSELTAMIVIR
  5. VITAMIN K [Concomitant]
     Active Substance: PHYTONADIONE
  6. RUTIN [Concomitant]
     Active Substance: RUTIN

REACTIONS (4)
  - Anxiety [None]
  - Vomiting [None]
  - Insomnia [None]
  - Nausea [None]

NARRATIVE: CASE EVENT DATE: 20190924
